FAERS Safety Report 6813378-6 (Version None)
Quarter: 2010Q3

REPORT INFORMATION
  Report Type: 
  Country: None (occurrence: None)
  Receive Date: 20100701
  Receipt Date: 20100624
  Transmission Date: 20110219
  Serious: Yes (Hospitalization, Disabling)
  Sender: FDA-Public Use
  Company Number: PHHY2010IT41066

PATIENT
  Sex: Female

DRUGS (2)
  1. EXELON [Suspect]
     Indication: DEMENTIA ALZHEIMER'S TYPE
     Dosage: 3 MG
     Route: 048
     Dates: start: 20100401, end: 20100525
  2. PROCAPTAN [Concomitant]
     Dosage: 5 MG DAILY

REACTIONS (2)
  - HAEMORRHAGIC STROKE [None]
  - HYPERTENSIVE CRISIS [None]
